FAERS Safety Report 26108272 (Version 1)
Quarter: 2025Q4

REPORT INFORMATION
  Report Type: Spontaneous
  Country: US (occurrence: None)
  Receive Date: 20251128
  Receipt Date: 20251128
  Transmission Date: 20260117
  Serious: Yes (Hospitalization)
  Sender: FDA-CTU
  Company Number: None

PATIENT
  Age: 27 Year
  Sex: Female

DRUGS (18)
  1. ENVARSUS XR [Suspect]
     Active Substance: TACROLIMUS
     Indication: Heart transplant
     Dosage: FREQUENCY : DAILY;?
     Route: 048
     Dates: start: 20250827
  2. MYCOPHENOLIC ACID [Suspect]
     Active Substance: MYCOPHENOLIC ACID
     Indication: Heart transplant
     Dosage: FREQUENCY : TWICE A DAY;?
     Route: 048
     Dates: start: 20240220
  3. ENVARSUS XR [Concomitant]
     Active Substance: TACROLIMUS
  4. ASPIRIN [Concomitant]
     Active Substance: ASPIRIN
  5. ATOVAQUONE [Concomitant]
     Active Substance: ATOVAQUONE
  6. CALCIUM CITRATE\VITAMIN D [Concomitant]
     Active Substance: CALCIUM CITRATE\VITAMIN D
  7. FAMOTIDINE [Concomitant]
     Active Substance: FAMOTIDINE
  8. ISOSORBIDE DINITRATE [Concomitant]
     Active Substance: ISOSORBIDE DINITRATE
  9. MAGNESIUM OXIDE [Concomitant]
     Active Substance: MAGNESIUM OXIDE
  10. MELATONIN [Concomitant]
     Active Substance: MELATONIN
  11. NYSTATIN [Concomitant]
     Active Substance: NYSTATIN
  12. PRAVASTATIN [Concomitant]
     Active Substance: PRAVASTATIN
  13. PREDNISONE [Concomitant]
     Active Substance: PREDNISONE
  14. SERTRALINE [Concomitant]
     Active Substance: SERTRALINE HYDROCHLORIDE
  15. VALGANCICLOVIR [Concomitant]
     Active Substance: VALGANCICLOVIR
  16. VITAMIN C [Concomitant]
     Active Substance: ASCORBIC ACID
  17. VITAMIN D [Concomitant]
     Active Substance: VITAMIN D NOS
  18. VITAMIN E [Concomitant]
     Active Substance: .ALPHA.-TOCOPHEROL

REACTIONS (3)
  - Vomiting [None]
  - Diarrhoea [None]
  - COVID-19 [None]

NARRATIVE: CASE EVENT DATE: 20251103
